FAERS Safety Report 16759379 (Version 1)
Quarter: 2019Q3

REPORT INFORMATION
  Report Type: Spontaneous
  Country: CH (occurrence: CH)
  Receive Date: 20190830
  Receipt Date: 20190830
  Transmission Date: 20191005
  Serious: Yes (Hospitalization, Other)
  Sender: FDA-Public Use
  Company Number: CH-AMERICAN REGENT INC-20182126

PATIENT

DRUGS (2)
  1. FERINJECT [Suspect]
     Active Substance: FERRIC CARBOXYMALTOSE
     Dosage: 1000 MG
  2. FERINJECT [Suspect]
     Active Substance: FERRIC CARBOXYMALTOSE
     Indication: IRON DEFICIENCY
     Dosage: 500 MG

REACTIONS (5)
  - Haemoglobin decreased [Unknown]
  - Haematocrit decreased [Unknown]
  - Transient ischaemic attack [Unknown]
  - Air embolism [Unknown]
  - Rash [Unknown]
